FAERS Safety Report 17366859 (Version 1)
Quarter: 2020Q1

REPORT INFORMATION
  Report Type: Report from Study
  Country: NL (occurrence: NL)
  Receive Date: 20200204
  Receipt Date: 20200204
  Transmission Date: 20200409
  Serious: Yes (Other)
  Sender: FDA-Public Use
  Company Number: NL-MYLANLABS-2020M1012382

PATIENT
  Age: 29 Year
  Sex: Female

DRUGS (2)
  1. AZATHIOPRINE. [Suspect]
     Active Substance: AZATHIOPRINE
     Indication: CROHN^S DISEASE
     Dosage: 50 MILLIGRAM, Q8H (50MG, 3X/D)
     Route: 048
     Dates: start: 20050708, end: 20091106
  2. INFLIXIMAB [Concomitant]
     Active Substance: INFLIXIMAB
     Indication: PRODUCT USED FOR UNKNOWN INDICATION
     Dosage: 300 MILLIGRAM (EVERY 8 WEEKS) (300MG, 1X/8W)
     Route: 042
     Dates: start: 20040714, end: 20100201

REACTIONS (3)
  - Lymphadenopathy [Recovered/Resolved]
  - Leukopenia [Recovered/Resolved]
  - Alopecia [Recovered/Resolved]

NARRATIVE: CASE EVENT DATE: 20091106
